FAERS Safety Report 9745282 (Version 2)
Quarter: 2013Q4

REPORT INFORMATION
  Report Type: Spontaneous
  Country: DE (occurrence: DE)
  Receive Date: 20131211
  Receipt Date: 20131211
  Transmission Date: 20140711
  Serious: Yes (Hospitalization)
  Sender: FDA-Public Use
  Company Number: DE-JNJFOC-20131108494

PATIENT
  Age: 24 Year
  Sex: Male

DRUGS (1)
  1. RISPERDAL [Suspect]
     Indication: PRODUCT USED FOR UNKNOWN INDICATION
     Dosage: 0-8 MG
     Route: 048
     Dates: start: 20130415

REACTIONS (3)
  - Weight increased [Not Recovered/Not Resolved]
  - Investigation [Not Recovered/Not Resolved]
  - Ejaculation failure [Not Recovered/Not Resolved]
